FAERS Safety Report 7737764-5 (Version None)
Quarter: 2011Q3

REPORT INFORMATION
  Report Type: 
  Country: None (occurrence: None)
  Receive Date: 20110906
  Receipt Date: 20110823
  Transmission Date: 20111222
  Serious: Yes (Death)
  Sender: FDA-Public Use
  Company Number: UTC-009297

PATIENT
  Age: 22 Year
  Sex: Female
  Weight: 27.6 kg

DRUGS (1)
  1. TYVASO [Suspect]
     Indication: PULMONARY ARTERIAL HYPERTENSION
     Dosage: 216 MCG (54 MCG, 4 IN 1 D), INHALATION
     Route: 055
     Dates: start: 20110316

REACTIONS (5)
  - DYSPNOEA [None]
  - SOCIAL PROBLEM [None]
  - PULMONARY HYPERTENSION [None]
  - TREATMENT NONCOMPLIANCE [None]
  - DISEASE PROGRESSION [None]
